FAERS Safety Report 21085412 (Version 5)
Quarter: 2024Q1

REPORT INFORMATION
  Report Type: Report from Study
  Country: US (occurrence: US)
  Receive Date: 20220714
  Receipt Date: 20240313
  Transmission Date: 20240410
  Serious: No
  Sender: FDA-Public Use
  Company Number: US-ACADIA PHARMACEUTICALS INC.-ACA-2022-PIM-002161

PATIENT
  Age: 70 Year
  Sex: Male

DRUGS (2)
  1. NUPLAZID [Suspect]
     Active Substance: PIMAVANSERIN TARTRATE
     Indication: Parkinson^s disease
     Dosage: 34 MILLIGRAM, QD, EVERY MORNING
     Route: 048
     Dates: start: 20190523
  2. NUPLAZID [Suspect]
     Active Substance: PIMAVANSERIN TARTRATE
     Dosage: 34 MILLIGRAM, QD, EVERY MORNING
     Route: 048

REACTIONS (6)
  - Product dose omission issue [Recovered/Resolved]
  - Nonspecific reaction [Unknown]
  - Nonspecific reaction [Unknown]
  - Product dose omission issue [Recovered/Resolved]
  - Hallucination [Not Recovered/Not Resolved]
  - Hallucination [Recovering/Resolving]

NARRATIVE: CASE EVENT DATE: 20240102
